FAERS Safety Report 7055299-2 (Version None)
Quarter: 2010Q4

REPORT INFORMATION
  Report Type: 
  Country: None (occurrence: None)
  Receive Date: 20101020
  Receipt Date: 20101020
  Transmission Date: 20110411
  Serious: Yes (Life-Threatening)
  Sender: FDA-Public Use
  Company Number: None

PATIENT
  Sex: Female
  Weight: 65.7716 kg

DRUGS (1)
  1. KEPPRA [Suspect]
     Indication: MIGRAINE
     Dosage: 500 MG 2X DAILY ORAL; 250 MG 2X DAILY ORAL
     Route: 048
     Dates: start: 20030101, end: 20050101

REACTIONS (6)
  - DIZZINESS [None]
  - FAECAL INCONTINENCE [None]
  - FEELING ABNORMAL [None]
  - LOSS OF CONSCIOUSNESS [None]
  - PARAESTHESIA [None]
  - UNEVALUABLE EVENT [None]
